FAERS Safety Report 15978957 (Version 1)
Quarter: 2019Q1

REPORT INFORMATION
  Report Type: Report from Study
  Country: BR (occurrence: BR)
  Receive Date: 20190219
  Receipt Date: 20190219
  Transmission Date: 20190418
  Serious: Yes (Hospitalization, Other)
  Sender: FDA-Public Use
  Company Number: BR-ROCHE-726894

PATIENT
  Sex: Female
  Weight: 68 kg

DRUGS (7)
  1. PRELONE [Concomitant]
     Active Substance: PREDNISOLONE
  2. PARACETAMOL [Concomitant]
     Active Substance: ACETAMINOPHEN
     Indication: PREMEDICATION
  3. MABTHERA [Suspect]
     Active Substance: RITUXIMAB
     Route: 042
     Dates: start: 20101101, end: 20121008
  4. MABTHERA [Suspect]
     Active Substance: RITUXIMAB
     Indication: RHEUMATOID ARTHRITIS
     Dosage: FORM: INFUSION
     Route: 042
     Dates: start: 200705, end: 200706
  5. ENBREL [Suspect]
     Active Substance: ETANERCEPT
     Indication: RHEUMATOID ARTHRITIS
     Route: 065
  6. METHOTREXATE. [Suspect]
     Active Substance: METHOTREXATE
     Indication: PRODUCT USED FOR UNKNOWN INDICATION
     Route: 065
  7. BIOFENAC (BRAZIL) [Concomitant]

REACTIONS (7)
  - Facial pain [Recovered/Resolved]
  - Memory impairment [Recovered/Resolved]
  - Infection [Recovered/Resolved]
  - Peripheral ischaemia [Recovered/Resolved]
  - Swelling face [Recovered/Resolved]
  - Nodule [Recovered/Resolved]
  - Hypersensitivity [Recovered/Resolved]

NARRATIVE: CASE EVENT DATE: 2016
